FAERS Safety Report 6120355-X (Version None)
Quarter: 2009Q1

REPORT INFORMATION
  Report Type: 
  Country: None (occurrence: None)
  Receive Date: 20090312
  Receipt Date: 20090312
  Transmission Date: 20090719
  Serious: Yes (Other)
  Sender: FDA-Public Use
  Company Number: None

PATIENT

DRUGS (1)
  1. TREXIMET [Suspect]
     Dosage: 25 MG SUMTRIPTAN 500 MG NAPROXEN 5ML / 1 TAB ONCE AND MAY REPEAT IN 2 HRS ORAL
     Route: 048

REACTIONS (1)
  - NO ADVERSE EVENT [None]
